FAERS Safety Report 6376600-9 (Version None)
Quarter: 2009Q3

REPORT INFORMATION
  Report Type: 
  Country: None (occurrence: None)
  Receive Date: 20090925
  Receipt Date: 20090923
  Transmission Date: 20100115
  Serious: Yes (Hospitalization)
  Sender: FDA-Public Use
  Company Number: PHHO2009US11523

PATIENT
  Age: 61 Year
  Sex: Male
  Weight: 54.4 kg

DRUGS (13)
  1. CERTICAN [Suspect]
     Indication: NEUROENDOCRINE CARCINOMA
     Dosage: 5MG QOD
     Route: 048
     Dates: start: 20090420, end: 20090811
  2. SOM230 SOM+INJ [Suspect]
     Indication: NEUROENDOCRINE CARCINOMA
     Dosage: 60MG MONTHLY
     Route: 030
     Dates: start: 20090420
  3. ASPIRIN [Concomitant]
  4. CELEXA [Concomitant]
  5. DILAUDID [Concomitant]
  6. FLUVOXAMINE MALEATE [Concomitant]
  7. GELCLAIR [Concomitant]
  8. LIDOCAINE [Concomitant]
  9. LISINOPRIL [Concomitant]
  10. LOMOTIL [Concomitant]
  11. PREDNISONE [Concomitant]
  12. TOPROL-XL [Concomitant]
  13. ZYPREXA [Concomitant]

REACTIONS (2)
  - CHEST PAIN [None]
  - HERPES ZOSTER [None]
